FAERS Safety Report 5490699-3 (Version None)
Quarter: 2007Q4

REPORT INFORMATION
  Report Type: 
  Country: None (occurrence: None)
  Receive Date: 20071019
  Receipt Date: 20071010
  Transmission Date: 20080405
  Serious: No
  Sender: FDA-Public Use
  Company Number: DE-ELI_LILLY_AND_COMPANY-DE200710002839

PATIENT
  Sex: Male

DRUGS (2)
  1. OLANZAPINE [Suspect]
  2. MIRTAZAPINE [Concomitant]

REACTIONS (1)
  - WHITE BLOOD CELL COUNT INCREASED [None]
